FAERS Safety Report 9775370 (Version 1)
Quarter: 2013Q4

REPORT INFORMATION
  Report Type: Spontaneous
  Country: US (occurrence: US)
  Receive Date: 20131220
  Receipt Date: 20131220
  Transmission Date: 20140711
  Serious: No
  Sender: FDA-Public Use
  Company Number: US-GALDERMA-US13003304

PATIENT
  Age: 43 Year
  Sex: Male

DRUGS (9)
  1. MIRVASO (BRIMONIDINE) TOPICAL GEL, 0.33% [Suspect]
     Indication: ROSACEA
     Route: 061
     Dates: start: 20131014, end: 20131027
  2. ORACEA (DOXYCYCLINE, USP) CAPSULES 40 MG [Concomitant]
     Indication: ROSACEA
     Route: 048
  3. ZYRTEC (CETIRIZINE) [Concomitant]
     Indication: MULTIPLE ALLERGIES
     Dosage: 10 MG
     Route: 048
  4. UNKNOWN SUNSCREEN [Concomitant]
     Indication: PROPHYLAXIS AGAINST SOLAR RADIATION
     Route: 061
  5. CERAVE MOISTURIZER [Concomitant]
     Indication: DRY SKIN PROPHYLAXIS
     Route: 061
  6. TOPROL-XL (METOPROLOL) [Concomitant]
     Route: 048
  7. XANAX (ALPRAZOLAM) [Concomitant]
     Indication: ANXIETY
     Dosage: 10 MG
     Route: 048
  8. FINACEA [Concomitant]
     Route: 061
     Dates: start: 20130607
  9. ACCUTANE [Concomitant]
     Dosage: 10 MG
     Route: 048
     Dates: start: 20130607

REACTIONS (5)
  - Condition aggravated [Recovered/Resolved]
  - Feeling hot [Recovered/Resolved]
  - Erythema [Recovered/Resolved]
  - Flushing [Recovered/Resolved]
  - Drug ineffective [Recovered/Resolved]
